FAERS Safety Report 5380988-5 (Version None)
Quarter: 2007Q3

REPORT INFORMATION
  Report Type: 
  Country: None (occurrence: None)
  Receive Date: 20070702
  Receipt Date: 20061220
  Transmission Date: 20080115
  Serious: Yes (Hospitalization)
  Sender: FDA-Public Use
  Company Number: SPV1-2006-02308

PATIENT
  Age: 79 Year
  Sex: Female

DRUGS (6)
  1. PENTASA [Suspect]
     Indication: CROHN'S DISEASE
     Dosage: 1000 MG 3XS DAILY, ORAL; 1000 MG 3XS DAILY, ORAL
     Route: 048
     Dates: start: 20061026, end: 20061125
  2. PENTASA [Suspect]
     Indication: CROHN'S DISEASE
     Dosage: 1000 MG 3XS DAILY, ORAL; 1000 MG 3XS DAILY, ORAL
     Route: 048
     Dates: start: 20061201, end: 20061209
  3. AZATHIOPRINE [Suspect]
     Indication: CROHN'S DISEASE
     Dosage: 50 MG DAILY, ORAL; 50 MG DAILY
     Route: 048
     Dates: start: 20061126, end: 20061130
  4. AZATHIOPRINE [Suspect]
     Indication: CROHN'S DISEASE
     Dosage: 50 MG DAILY, ORAL; 50 MG DAILY
     Route: 048
     Dates: start: 20061205, end: 20061209
  5. TRIMEBUTINE MALAEAT (TRIMEBUTINE MALEATE) [Concomitant]
  6. BENIDIPINE HYDROCHLORIDE (BENIDIPINE HYDROCHLORIDE) [Concomitant]

REACTIONS (1)
  - PANCREATITIS ACUTE [None]
